FAERS Safety Report 22282545 (Version 2)
Quarter: 2024Q1

REPORT INFORMATION
  Report Type: Spontaneous
  Country: CA (occurrence: None)
  Receive Date: 20230504
  Receipt Date: 20240327
  Transmission Date: 20240410
  Serious: Yes (Hospitalization, Other)
  Sender: FDA-Public Use
  Company Number: 2023A102650

PATIENT
  Age: 75 Year
  Sex: Female

DRUGS (11)
  1. DAPAGLIFLOZIN PROPANEDIOL [Suspect]
     Active Substance: DAPAGLIFLOZIN PROPANEDIOL
     Indication: Type 2 diabetes mellitus
     Route: 048
     Dates: start: 20220420
  2. SEMAGLUTIDE [Suspect]
     Active Substance: SEMAGLUTIDE
     Indication: Type 2 diabetes mellitus
     Dosage: 1 MILLIGRAM, 1 EVERY 1 (WEEKS)
     Route: 058
     Dates: start: 20221019
  3. SEMAGLUTIDE [Suspect]
     Active Substance: SEMAGLUTIDE
     Indication: Product used for unknown indication
     Dosage: 1 MILLIGRAM, 1 EVERY 1 (WEEKS)
     Route: 058
     Dates: start: 20221019
  4. SEMAGLUTIDE [Suspect]
     Active Substance: SEMAGLUTIDE
     Indication: Type 2 diabetes mellitus
     Dosage: 1 MILLIGRAM, 1 EVERY 1 (WEEKS)
     Route: 058
     Dates: start: 20220420
  5. SEMAGLUTIDE [Suspect]
     Active Substance: SEMAGLUTIDE
     Indication: Product used for unknown indication
     Dosage: 1 MILLIGRAM, 1 EVERY 1 (WEEKS)
     Route: 058
     Dates: start: 20220420
  6. TRESIBA [Suspect]
     Active Substance: INSULIN DEGLUDEC
     Indication: Type 2 diabetes mellitus
     Dosage: 160 IU (INTERNATIONAL UNIT) 1 EVERY 1 DAYS
     Route: 058
     Dates: start: 20220420
  7. TRESIBA [Suspect]
     Active Substance: INSULIN DEGLUDEC
     Indication: Product used for unknown indication
     Dosage: 160 IU (INTERNATIONAL UNIT) 1 EVERY 1 DAYS
     Route: 058
     Dates: start: 20220420
  8. TRESIBA [Suspect]
     Active Substance: INSULIN DEGLUDEC
     Indication: Type 2 diabetes mellitus
     Dosage: 160 IU (INTERNATIONAL UNIT) 1 EVERY 1 DAYS
     Route: 058
     Dates: start: 20220531
  9. TRESIBA [Suspect]
     Active Substance: INSULIN DEGLUDEC
     Indication: Product used for unknown indication
     Dosage: 160 IU (INTERNATIONAL UNIT) 1 EVERY 1 DAYS
     Route: 058
     Dates: start: 20220531
  10. TRESIBA [Suspect]
     Active Substance: INSULIN DEGLUDEC
     Indication: Type 2 diabetes mellitus
     Dosage: 160 IU (INTERNATIONAL UNIT) 1 EVERY 1 DAYS
     Route: 058
     Dates: start: 20221129
  11. TRESIBA [Suspect]
     Active Substance: INSULIN DEGLUDEC
     Indication: Product used for unknown indication
     Dosage: 160 IU (INTERNATIONAL UNIT) 1 EVERY 1 DAYS
     Route: 058
     Dates: start: 20221129

REACTIONS (1)
  - Meniere^s disease [Recovered/Resolved]

NARRATIVE: CASE EVENT DATE: 20221207
